APPROVED DRUG PRODUCT: FAMOTIDINE
Active Ingredient: FAMOTIDINE
Strength: 10MG
Dosage Form/Route: TABLET;ORAL
Application: A077146 | Product #001
Applicant: GLENMARK PHARMACEUTICALS INC USA
Approved: Mar 7, 2005 | RLD: No | RS: No | Type: OTC